FAERS Safety Report 6092045-3 (Version None)
Quarter: 2009Q1

REPORT INFORMATION
  Report Type: 
  Country: None (occurrence: None)
  Receive Date: 20090225
  Receipt Date: 20090213
  Transmission Date: 20090719
  Serious: Yes (Other)
  Sender: FDA-Public Use
  Company Number: US-BIOGENIDEC-2009BI005432

PATIENT
  Age: 32 Year
  Sex: Female

DRUGS (4)
  1. AVONEX [Suspect]
     Indication: MULTIPLE SCLEROSIS
     Route: 030
     Dates: start: 20010501, end: 20020401
  2. AVONEX [Suspect]
     Route: 030
     Dates: start: 20021101, end: 20030101
  3. AVONEX [Suspect]
     Route: 030
     Dates: start: 20030101, end: 20051001
  4. AVONEX [Suspect]
     Route: 030
     Dates: start: 20060601

REACTIONS (1)
  - PREGNANCY INDUCED HYPERTENSION [None]
